FAERS Safety Report 7954464-7 (Version None)
Quarter: 2011Q4

REPORT INFORMATION
  Report Type: 
  Country: None (occurrence: None)
  Receive Date: 20111202
  Receipt Date: 20111125
  Transmission Date: 20120403
  Serious: Yes (Hospitalization, Other)
  Sender: FDA-Public Use
  Company Number: FR-BRISTOL-MYERS SQUIBB COMPANY-16255739

PATIENT
  Age: 69 Year
  Sex: Female

DRUGS (20)
  1. TRIMEPRAZINE TARTRATE [Concomitant]
  2. VECTARION [Concomitant]
  3. SPECIAFOLDINE [Concomitant]
  4. FERROUS SULFATE TAB [Concomitant]
  5. DIPROSONE [Concomitant]
     Dosage: CREAM
  6. ZOLPIDEM [Concomitant]
  7. ATORVASTATIN CALCIUM [Concomitant]
  8. ACETAMINOPHEN [Concomitant]
  9. DEXERYL [Concomitant]
  10. PLAVIX [Concomitant]
  11. FLUTICASONE PROPIONATE/SALMETEROL [Concomitant]
     Dosage: 1DF= 2PUFFS
  12. SPIRIVA [Concomitant]
     Dosage: 2 PUFFS IN THE MRNG
  13. RUBOZINC [Concomitant]
  14. ANAFRANIL [Concomitant]
  15. LEVOTHYROXINE SODIUM [Concomitant]
  16. LYRICA [Concomitant]
  17. VENTOLIN [Concomitant]
  18. CARMUSTINE [Suspect]
     Indication: MYCOSIS FUNGOIDES
     Dosage: SEPTEMBER TO OCTOBER 2007 STOPPED FOR ATOPIC ECZEMA MARCH TO JUNE 2011,DILUTED AT 10%
     Route: 042
     Dates: start: 20110301, end: 20110601
  19. TARGRETIN [Suspect]
     Indication: MYCOSIS FUNGOIDES
     Dosage: SEPTEMBER 2008 FOR 3 MONTHS (ALSO STOPPED DUE TO INEFFICIENCY AND DYSLIPIDEMIA)
     Route: 048
     Dates: start: 20110101, end: 20110727
  20. FENOFIBRATE [Concomitant]

REACTIONS (6)
  - ANAEMIA [None]
  - HAEMATOCHEZIA [None]
  - DERMATITIS ATOPIC [None]
  - COAGULOPATHY [None]
  - NEOPLASM MALIGNANT [None]
  - GENERAL PHYSICAL HEALTH DETERIORATION [None]
